FAERS Safety Report 6686584-1 (Version None)
Quarter: 2010Q2

REPORT INFORMATION
  Report Type: 
  Country: None (occurrence: None)
  Receive Date: 20100419
  Receipt Date: 20100415
  Transmission Date: 20101027
  Serious: Yes (Hospitalization)
  Sender: FDA-Public Use
  Company Number: NL-ROCHE-697506

PATIENT

DRUGS (13)
  1. CAPECITABINE [Suspect]
     Indication: GASTRIC CANCER
     Dosage: DOSE AND FREQUENCY AS PER PROTOCOL. LAST DOSE PRIOR TO SAE ON 26 JANUARY 2010.
     Route: 048
     Dates: start: 20091202
  2. EPIRUBICIN [Suspect]
     Indication: GASTRIC CANCER
     Dosage: DOSE AND FREQUENCY AS PER PROTOCOL. LAST DOSE PRIOR TO SAE ON 13 JANUARY 2010.
     Route: 042
     Dates: start: 20091202
  3. CISPLATIN [Suspect]
     Indication: GASTRIC CANCER
     Dosage: DOSE AND FREQUENCY AS PER PROTOCOL. LAST DOSE PRIOR TO SAE ON 13 JANUARY 2010.
     Route: 042
     Dates: start: 20091202
  4. AMLODIPINE [Concomitant]
  5. LOPERAMIDE [Concomitant]
  6. LORAZEPAM [Concomitant]
     Dosage: DRUG REPORTED: LORAZEPAM PRN.
  7. METOCLOPRAMIDE HYDROCHLORIDE [Concomitant]
  8. METOPROLOL TARTRATE [Concomitant]
  9. PARACETAMOL [Concomitant]
  10. SIMVASTATIN [Concomitant]
  11. SPIRONOLACTONE [Concomitant]
  12. TEMAZEPAM [Concomitant]
  13. TRAMADOL HCL [Concomitant]

REACTIONS (1)
  - ENTEROCUTANEOUS FISTULA [None]
